FAERS Safety Report 9105448 (Version 1)
Quarter: 2013Q1

REPORT INFORMATION
  Report Type: Spontaneous
  Country: US (occurrence: US)
  Receive Date: 20130220
  Receipt Date: 20130220
  Transmission Date: 20140127
  Serious: Yes (Other)
  Sender: FDA-Public Use
  Company Number: US-PFIZER INC-2013062915

PATIENT
  Age: 74 Year
  Sex: Female
  Weight: 74.83 kg

DRUGS (1)
  1. LYRICA [Suspect]
     Indication: NEUROPATHY PERIPHERAL
     Dosage: 50 MG, UNK
     Dates: start: 20130216, end: 201302

REACTIONS (2)
  - Muscular weakness [Unknown]
  - Dizziness [Unknown]
